FAERS Safety Report 25223511 (Version 1)
Quarter: 2025Q2

REPORT INFORMATION
  Report Type: Spontaneous
  Country: US (occurrence: US)
  Receive Date: 20250422
  Receipt Date: 20250422
  Transmission Date: 20250717
  Serious: No
  Sender: ALEXION PHARMACEUTICALS
  Company Number: US-AstraZeneca-CH-00852375A

PATIENT

DRUGS (1)
  1. FARXIGA [Suspect]
     Active Substance: DAPAGLIFLOZIN PROPANEDIOL
     Dosage: UNK MILLIGRAM, QD
     Route: 065

REACTIONS (4)
  - Blood glucose increased [Unknown]
  - Blood glucose fluctuation [Unknown]
  - Drug ineffective [Unknown]
  - Product quality issue [Unknown]
